FAERS Safety Report 16264745 (Version 2)
Quarter: 2020Q2

REPORT INFORMATION
  Report Type: Spontaneous
  Country: US (occurrence: US)
  Receive Date: 20190502
  Receipt Date: 20200615
  Transmission Date: 20200713
  Serious: No
  Sender: FDA-Public Use
  Company Number: US-PFIZER INC-2019177203

PATIENT
  Age: 81 Year
  Sex: Female
  Weight: 74.39 kg

DRUGS (2)
  1. DOFETILIDE. [Suspect]
     Active Substance: DOFETILIDE
     Indication: ATRIAL FLUTTER
  2. DOFETILIDE. [Suspect]
     Active Substance: DOFETILIDE
     Indication: ATRIAL FIBRILLATION
     Dosage: 250 UG, 2X/DAY
     Route: 048
     Dates: start: 20181218, end: 201902

REACTIONS (4)
  - Palpitations [Recovering/Resolving]
  - Drug intolerance [Unknown]
  - Drug ineffective [Unknown]
  - Malaise [Recovering/Resolving]
